FAERS Safety Report 4372141-9 (Version None)
Quarter: 2004Q2

REPORT INFORMATION
  Report Type: 
  Country: None (occurrence: None)
  Receive Date: 20040607
  Receipt Date: 20040528
  Transmission Date: 20050107
  Serious: Yes (Life-Threatening)
  Sender: FDA-Public Use
  Company Number: GB-MERCK-0406GBR00007

PATIENT
  Age: 80 Year
  Sex: Male
  Weight: 50 kg

DRUGS (12)
  1. ALLOPURINOL [Concomitant]
     Route: 065
  2. CLOPIDOGREL BISULFATE [Concomitant]
     Route: 065
  3. FLUDROCORTISONE [Concomitant]
     Indication: HYPOTENSION
     Route: 065
     Dates: start: 20040212
  4. FUSIDATE SODIUM [Concomitant]
     Indication: UPPER RESPIRATORY TRACT INFECTION
     Route: 048
     Dates: start: 20040506, end: 20040508
  5. FUSIDATE SODIUM [Concomitant]
     Indication: STAPHYLOCOCCAL INFECTION
     Route: 048
     Dates: start: 20040506, end: 20040508
  6. MIRTAZAPINE [Concomitant]
     Indication: DEPRESSION
     Route: 065
  7. MORPHINE SULFATE [Concomitant]
     Route: 065
  8. OMEPRAZOLE [Concomitant]
     Route: 065
  9. PREDNISOLONE [Concomitant]
     Route: 065
     Dates: start: 20040423
  10. VIOXX [Suspect]
     Indication: PAIN
     Route: 048
     Dates: start: 20040415, end: 20040508
  11. TRIMETHOPRIM [Concomitant]
     Indication: STAPHYLOCOCCAL INFECTION
     Route: 065
     Dates: start: 20040330
  12. VANCOMYCIN [Concomitant]
     Route: 065
     Dates: start: 20040325, end: 20040330

REACTIONS (2)
  - BLOOD CREATININE INCREASED [None]
  - HYPERKALAEMIA [None]
